FAERS Safety Report 7692272-5 (Version None)
Quarter: 2011Q3

REPORT INFORMATION
  Report Type: 
  Country: None (occurrence: None)
  Receive Date: 20110818
  Receipt Date: 20110805
  Transmission Date: 20111222
  Serious: Yes (Hospitalization)
  Sender: FDA-Public Use
  Company Number: FR-MYLANLABS-2011S1016320

PATIENT
  Age: 17 Year
  Sex: Female

DRUGS (2)
  1. TRIMEBUTINE [Suspect]
     Indication: OVERDOSE
  2. LOPERAMIDE HCL [Suspect]
     Indication: OVERDOSE
     Route: 065

REACTIONS (3)
  - PANCREATIC ENZYMES INCREASED [None]
  - ABDOMINAL PAIN [None]
  - INTENTIONAL OVERDOSE [None]
